FAERS Safety Report 6136494-3 (Version None)
Quarter: 2009Q1

REPORT INFORMATION
  Report Type: 
  Country: None (occurrence: None)
  Receive Date: 20090330
  Receipt Date: 20090320
  Transmission Date: 20090719
  Serious: Yes (Death)
  Sender: FDA-Public Use
  Company Number: PL-PFIZER INC-2008074491

PATIENT

DRUGS (7)
  1. BLINDED *PLACEBO [Suspect]
     Indication: COLORECTAL CANCER
     Dosage: 37.5 MG, 1X/DAY
     Route: 048
     Dates: start: 20080407, end: 20080829
  2. BLINDED SUNITINIB MALATE [Suspect]
     Indication: COLORECTAL CANCER
     Dosage: 37.5 MG, 1X/DAY
     Route: 048
     Dates: start: 20080407, end: 20080829
  3. IRINOTECAN HCL [Suspect]
     Indication: COLORECTAL CANCER
     Dosage: 349 MG, EVERY 2 WEEKS
     Dates: start: 20080407, end: 20080818
  4. FLUOROURACIL [Suspect]
     Indication: COLORECTAL CANCER
     Dosage: 1 EVERY 2 WEEKS
     Dates: start: 20080407, end: 20080820
  5. CALCIUM FOLINATE [Suspect]
     Indication: COLORECTAL CANCER
     Dosage: 1 EVERY 2 WEEKS
     Dates: start: 20080407, end: 20080818
  6. FENTANYL CITRATE [Suspect]
     Indication: PAIN
     Dosage: 25 UG
     Dates: start: 20080803
  7. KETOPROFEN [Concomitant]
     Indication: PAIN
     Dosage: 100 MG
     Dates: start: 20080801, end: 20080804

REACTIONS (1)
  - COLONIC OBSTRUCTION [None]
